FAERS Safety Report 21411886 (Version 1)
Quarter: 2022Q4

REPORT INFORMATION
  Report Type: Spontaneous
  Country: US (occurrence: US)
  Receive Date: 20221005
  Receipt Date: 20221005
  Transmission Date: 20230113
  Serious: No
  Sender: FDA-Public Use
  Company Number: US-PFIZER INC-PV202200075017

PATIENT
  Age: 41 Year
  Sex: Male

DRUGS (1)
  1. PAXLOVID [Suspect]
     Active Substance: NIRMATRELVIR\RITONAVIR
     Indication: COVID-19 treatment
     Dosage: UNK (6 DOSES)
     Dates: start: 20220919, end: 20220922

REACTIONS (5)
  - Chronic sinusitis [Unknown]
  - Blood immunoglobulin G decreased [Unknown]
  - COVID-19 [Unknown]
  - Disease recurrence [Unknown]
  - Feeling abnormal [Unknown]

NARRATIVE: CASE EVENT DATE: 20220901
